FAERS Safety Report 10780025 (Version 4)
Quarter: 2020Q4

REPORT INFORMATION
  Report Type: Spontaneous
  Country: ES (occurrence: ES)
  Receive Date: 20150210
  Receipt Date: 20201215
  Transmission Date: 20210113
  Serious: Yes (Death, Other)
  Sender: FDA-Public Use
  Company Number: ES-009507513-1502ESP001254

PATIENT
  Age: 76 Year
  Sex: Male

DRUGS (1)
  1. BCG VACCINE LIVE INTRAVESICAL [Suspect]
     Active Substance: BCG VACCINE
     Indication: BLADDER CANCER
     Dosage: UNK
     Route: 043

REACTIONS (1)
  - Disseminated tuberculosis [Fatal]
